FAERS Safety Report 9161202 (Version 1)
Quarter: 2013Q1

REPORT INFORMATION
  Report Type: Spontaneous
  Country: GB (occurrence: GB)
  Receive Date: 20130313
  Receipt Date: 20130313
  Transmission Date: 20140127
  Serious: Yes (Other)
  Sender: FDA-Public Use
  Company Number: GB-009507513-1303GBR005173

PATIENT
  Age: 66 Year
  Sex: Male
  Weight: 110.6 kg

DRUGS (13)
  1. SINEMET [Suspect]
     Indication: PARKINSON^S DISEASE
     Dosage: 12.5 MG, TID
     Route: 048
     Dates: start: 20120101
  2. AMLODIPINE [Concomitant]
  3. ASPIRIN [Concomitant]
  4. BETAHISTINE [Concomitant]
  5. BEZAFIBRATE [Concomitant]
  6. CITALOPRAM [Concomitant]
  7. CLOPIDOGREL [Concomitant]
  8. AMILORIDE HYDROCHLORIDE (+) FUROSEMIDE [Concomitant]
  9. MIRTAZAPINE [Concomitant]
  10. NEBIVOLOL [Concomitant]
  11. OMEPRAZOLE [Concomitant]
  12. RAMIPRIL [Concomitant]
  13. SPIRONOLACTONE [Concomitant]

REACTIONS (2)
  - Gambling [Not Recovered/Not Resolved]
  - Impulsive behaviour [Not Recovered/Not Resolved]
